FAERS Safety Report 9076953 (Version 4)
Quarter: 2013Q4

REPORT INFORMATION
  Report Type: Report from Study
  Country: BR (occurrence: BR)
  Receive Date: 20130130
  Receipt Date: 20131028
  Transmission Date: 20140711
  Serious: Yes (Hospitalization)
  Sender: FDA-Public Use
  Company Number: BR-US-EMD SERONO, INC.-7189499

PATIENT
  Age: 56 Year
  Sex: Female

DRUGS (7)
  1. REBIF [Suspect]
     Indication: MULTIPLE SCLEROSIS
     Dates: start: 20101020, end: 201301
  2. REBIF [Suspect]
     Dates: start: 20130120
  3. ATENOLOL [Concomitant]
     Indication: HYPERTENSION
     Dosage: 50
  4. MODURETIC [Concomitant]
     Indication: HYPERTENSION
     Dosage: 25
  5. AMARYL [Concomitant]
     Indication: HEADACHE
  6. DESVENLAFAXIN [Concomitant]
     Indication: DEPRESSION
  7. DESVENLAFAXIN [Concomitant]
     Indication: HEADACHE

REACTIONS (5)
  - Multiple sclerosis relapse [Recovered/Resolved]
  - Pneumonia bacterial [Recovered/Resolved]
  - Flatulence [Unknown]
  - Libido decreased [Unknown]
  - Decreased interest [Unknown]
